FAERS Safety Report 13340266 (Version 1)
Quarter: 2017Q1

REPORT INFORMATION
  Report Type: Spontaneous
  Country: US (occurrence: US)
  Receive Date: 20170316
  Receipt Date: 20170316
  Transmission Date: 20170428
  Serious: No
  Sender: FDA-Public Use
  Company Number: US-009507513-1702USA011801

PATIENT
  Sex: Female

DRUGS (1)
  1. PROVENTIL [Suspect]
     Active Substance: ALBUTEROL
     Indication: PNEUMOTHORAX
     Dosage: UNK
     Dates: start: 2007

REACTIONS (8)
  - Nocturnal dyspnoea [Unknown]
  - Suffocation feeling [Unknown]
  - Wheezing [Unknown]
  - Dyspnoea [Unknown]
  - Product use issue [Unknown]
  - Product availability issue [Unknown]
  - Product substitution issue [Unknown]
  - Migraine [Unknown]

NARRATIVE: CASE EVENT DATE: 2007
